FAERS Safety Report 11420751 (Version 1)
Quarter: 2015Q3

REPORT INFORMATION
  Report Type: Spontaneous
  Country: US (occurrence: US)
  Receive Date: 20150826
  Receipt Date: 20150826
  Transmission Date: 20151125
  Serious: Yes (Death, Other)
  Sender: FDA-Public Use
  Company Number: US-ELI_LILLY_AND_COMPANY-US201508005793

PATIENT
  Sex: Female

DRUGS (3)
  1. GEMCITABINE HYDROCHLORIDE. [Suspect]
     Active Substance: GEMCITABINE HYDROCHLORIDE
     Indication: PRODUCT USED FOR UNKNOWN INDICATION
     Dosage: 1000 MG/M2, CYCLICAL
     Route: 042
  2. CARBOPLATIN. [Suspect]
     Active Substance: CARBOPLATIN
     Indication: PRODUCT USED FOR UNKNOWN INDICATION
     Dosage: UNK, OTHER
     Route: 042
  3. VORINOSTAT [Suspect]
     Active Substance: VORINOSTAT
     Indication: PRODUCT USED FOR UNKNOWN INDICATION
     Dosage: 400 MG, CYCLICAL
     Route: 042

REACTIONS (4)
  - Off label use [Unknown]
  - Gastrointestinal perforation [Unknown]
  - Malignant neoplasm progression [Fatal]
  - Thrombocytopenia [Unknown]
